FAERS Safety Report 14701998 (Version 2)
Quarter: 2018Q3

REPORT INFORMATION
  Report Type: Report from Study
  Country: JP (occurrence: JP)
  Receive Date: 20180331
  Receipt Date: 20180823
  Transmission Date: 20181010
  Serious: Yes (Death, Life-Threatening)
  Sender: FDA-Public Use
  Company Number: JP-B.I. PHARMACEUTICALS,INC./RIDGEFIELD-2017-NB-007165

PATIENT
  Age: 68 Year
  Sex: Male
  Weight: 53.7 kg

DRUGS (20)
  1. MEDICON [Concomitant]
     Active Substance: DEXTROMETHORPHAN HYDROBROMIDE
     Route: 065
     Dates: start: 20170105, end: 20170502
  2. CODEINE PHOSPHATE [Concomitant]
     Active Substance: CODEINE PHOSPHATE
     Indication: PRODUCT USED FOR UNKNOWN INDICATION
     Route: 065
     Dates: start: 20161110, end: 20161207
  3. BAYASPIRIN [Concomitant]
     Active Substance: ASPIRIN
     Indication: PRODUCT USED FOR UNKNOWN INDICATION
     Route: 065
     Dates: end: 20161019
  4. MIYA?BM [Concomitant]
     Active Substance: CLOSTRIDIUM BUTYRICUM SPORES STRAIN M-55
     Indication: CONSTIPATION
     Route: 065
     Dates: start: 20170219, end: 20170502
  5. HANGEKOBOKUTO [Concomitant]
     Active Substance: HERBALS
     Indication: PRODUCT USED FOR UNKNOWN INDICATION
     Route: 065
     Dates: start: 20161027, end: 20161109
  6. NAFTOPIDIL OD [Concomitant]
     Indication: PRODUCT USED FOR UNKNOWN INDICATION
     Route: 065
     Dates: start: 20170210, end: 20170407
  7. MEROPENEM. [Suspect]
     Active Substance: MEROPENEM
     Indication: LUNG CYST
     Route: 065
     Dates: start: 20170209, end: 20170209
  8. MEDICON [Concomitant]
     Active Substance: DEXTROMETHORPHAN HYDROBROMIDE
     Indication: PRODUCT USED FOR UNKNOWN INDICATION
     Route: 065
     Dates: start: 20161208, end: 20170104
  9. RINDERON VG [Concomitant]
     Active Substance: BETAMETHASONE VALERATE\GENTAMICIN SULFATE
     Indication: PRODUCT USED FOR UNKNOWN INDICATION
     Route: 065
     Dates: start: 20170208
  10. MAGMITT [Concomitant]
     Active Substance: MAGNESIUM OXIDE
     Indication: PRODUCT USED FOR UNKNOWN INDICATION
     Route: 065
     Dates: start: 20170202, end: 20170217
  11. MEROPENEM. [Suspect]
     Active Substance: MEROPENEM
     Route: 065
     Dates: start: 20170222, end: 20170222
  12. CRAVIT [Suspect]
     Active Substance: LEVOFLOXACIN
     Indication: LUNG CYST
     Route: 065
     Dates: start: 20170218, end: 20170222
  13. MEROPENEM. [Suspect]
     Active Substance: MEROPENEM
     Route: 065
     Dates: start: 20170210, end: 20170221
  14. FLAVERIC [Concomitant]
     Active Substance: BENPROPERINE PHOSPHATE
     Indication: PRODUCT USED FOR UNKNOWN INDICATION
     Route: 065
     Dates: end: 20161019
  15. NEXIUM [Concomitant]
     Active Substance: ESOMEPRAZOLE MAGNESIUM
     Indication: PRODUCT USED FOR UNKNOWN INDICATION
     Route: 065
     Dates: end: 20170322
  16. CANDESARTAN. [Concomitant]
     Active Substance: CANDESARTAN
     Indication: PRODUCT USED FOR UNKNOWN INDICATION
     Route: 065
     Dates: end: 20161019
  17. TOVIAZ [Concomitant]
     Active Substance: FESOTERODINE FUMARATE
     Indication: PRODUCT USED FOR UNKNOWN INDICATION
     Route: 065
     Dates: start: 20170210, end: 20170217
  18. BIBF 1120 [Suspect]
     Active Substance: NINTEDANIB
     Indication: IDIOPATHIC PULMONARY FIBROSIS
     Route: 065
     Dates: start: 20161014, end: 20170223
  19. AMITIZA [Concomitant]
     Active Substance: LUBIPROSTONE
     Indication: CONSTIPATION
     Route: 065
     Dates: start: 20170215, end: 20170502
  20. METEBANYL [Concomitant]
     Indication: COUGH
     Route: 065
     Dates: start: 20161014, end: 20161109

REACTIONS (5)
  - Haemoptysis [Recovered/Resolved]
  - Pneumonia bacterial [Fatal]
  - Asteatosis [Unknown]
  - Idiopathic pulmonary fibrosis [Unknown]
  - Erythema [Recovered/Resolved]

NARRATIVE: CASE EVENT DATE: 20170202
